FAERS Safety Report 7419648-5 (Version None)
Quarter: 2011Q2

REPORT INFORMATION
  Report Type: 
  Country: None (occurrence: None)
  Receive Date: 20110418
  Receipt Date: 20110408
  Transmission Date: 20111010
  Serious: Yes (Other)
  Sender: FDA-Public Use
  Company Number: US-US-EMD SERONO, INC.-232419J10USA

PATIENT
  Sex: Male

DRUGS (2)
  1. REBIF [Suspect]
     Indication: MULTIPLE SCLEROSIS
     Route: 058
     Dates: start: 20041022
  2. NEURONTIN [Concomitant]
     Indication: PARAESTHESIA
     Dates: start: 20040101

REACTIONS (5)
  - RAYNAUD'S PHENOMENON [None]
  - INJECTION SITE REACTION [None]
  - CHILLBLAINS [None]
  - MUSCLE SPASMS [None]
  - INFLUENZA [None]
